FAERS Safety Report 20321330 (Version 3)
Quarter: 2022Q1

REPORT INFORMATION
  Report Type: Report from Study
  Country: MA (occurrence: MA)
  Receive Date: 20220111
  Receipt Date: 20220311
  Transmission Date: 20220423
  Serious: Yes (Other)
  Sender: FDA-Public Use
  Company Number: MA-NOVARTISPH-NVSC2021MA257678

PATIENT
  Sex: Female

DRUGS (2)
  1. KISQALI [Suspect]
     Active Substance: RIBOCICLIB
     Indication: Breast cancer
     Dosage: 200 MG, TID
     Route: 048
     Dates: start: 20211023
  2. KISQALI [Suspect]
     Active Substance: RIBOCICLIB
     Dosage: 200 MG, BID
     Route: 048
     Dates: start: 20211023

REACTIONS (7)
  - Red blood cell count decreased [Unknown]
  - Blood test abnormal [Unknown]
  - White blood cell count decreased [Unknown]
  - Musculoskeletal stiffness [Not Recovered/Not Resolved]
  - Pain [Unknown]
  - Decreased immune responsiveness [Unknown]
  - Abdominal pain upper [Unknown]
